FAERS Safety Report 6673588-8 (Version None)
Quarter: 2010Q2

REPORT INFORMATION
  Report Type: 
  Country: None (occurrence: None)
  Receive Date: 20100408
  Receipt Date: 20100326
  Transmission Date: 20101027
  Serious: Yes (Life-Threatening)
  Sender: FDA-Public Use
  Company Number: FR-PFIZER INC-2010024976

PATIENT
  Age: 51 Year
  Sex: Female

DRUGS (2)
  1. CLINDAMYCIN HCL [Suspect]
     Indication: ANAESTHESIA PROCEDURE
     Dosage: 10 ML
     Route: 042
     Dates: start: 20100212, end: 20100212
  2. CLINDAMYCIN HCL [Suspect]
     Indication: ANTIBIOTIC PROPHYLAXIS

REACTIONS (5)
  - ABDOMINAL PAIN [None]
  - CHEST PAIN [None]
  - MYOCARDIAL ISCHAEMIA [None]
  - TACHYCARDIA [None]
  - VENTRICULAR EXTRASYSTOLES [None]
